FAERS Safety Report 10764698 (Version 2)
Quarter: 2015Q1

REPORT INFORMATION
  Report Type: Spontaneous
  Country: US (occurrence: US)
  Receive Date: 20150205
  Receipt Date: 20150324
  Transmission Date: 20150721
  Serious: Yes (Other)
  Sender: FDA-Public Use
  Company Number: US-ASTRAZENECA-2015SE10936

PATIENT
  Age: 803 Month
  Sex: Male

DRUGS (9)
  1. METFORMIN [Concomitant]
     Active Substance: METFORMIN HYDROCHLORIDE
     Dates: start: 20100615
  2. METOPROLOL [Concomitant]
     Active Substance: METOPROLOL
     Dosage: BID
     Route: 048
     Dates: start: 20100615
  3. BYETTA [Suspect]
     Active Substance: EXENATIDE
     Indication: TYPE 2 DIABETES MELLITUS
     Dosage: ONE INJECTION UNDER THE SKIN TWICE DAILY
     Route: 065
     Dates: start: 20090624
  4. CITALOPRAM [Concomitant]
     Active Substance: CITALOPRAM HYDROBROMIDE
  5. BYETTA [Suspect]
     Active Substance: EXENATIDE
     Indication: TYPE 2 DIABETES MELLITUS
     Route: 065
     Dates: start: 200906
  6. ASPIRIN. [Concomitant]
     Active Substance: ASPIRIN
  7. DIOVAN [Concomitant]
     Active Substance: VALSARTAN
     Dates: start: 20100615
  8. SIMVASTATIN. [Concomitant]
     Active Substance: SIMVASTATIN
     Dosage: QHS
     Route: 048
     Dates: start: 20100615
  9. AMLODIPINE [Concomitant]
     Active Substance: AMLODIPINE BESYLATE

REACTIONS (2)
  - Papillary thyroid cancer [Unknown]
  - Metastases to neck [Unknown]

NARRATIVE: CASE EVENT DATE: 201001
